FAERS Safety Report 13260825 (Version 1)
Quarter: 2017Q1

REPORT INFORMATION
  Report Type: Report from Study
  Country: BR (occurrence: BR)
  Receive Date: 20170222
  Receipt Date: 20170222
  Transmission Date: 20170428
  Serious: Yes (Other)
  Sender: FDA-Public Use
  Company Number: PHHY2017BR026295

PATIENT
  Sex: Female
  Weight: 53 kg

DRUGS (5)
  1. ACLASTA [Suspect]
     Active Substance: ZOLEDRONIC ACID
     Dosage: UNK
     Route: 042
     Dates: start: 20160802
  2. ACLASTA [Suspect]
     Active Substance: ZOLEDRONIC ACID
     Indication: OSTEOPOROSIS
     Dosage: 5 MG, Q12MO
     Route: 042
     Dates: start: 201505
  3. DAFLON [Concomitant]
     Active Substance: DIOSMIN\HESPERIDIN
     Indication: CARDIOVASCULAR DISORDER
     Dosage: 1000 MG, QD (ALMOST 2 YEARS)
     Route: 048
  4. BENERVA [Concomitant]
     Active Substance: THIAMINE
     Indication: PRODUCT USED FOR UNKNOWN INDICATION
     Dosage: 300 MG, QD (SINCE ABOUT 1 YEAR AGO)
     Route: 048
  5. VASTAREL [Concomitant]
     Active Substance: TRIMETAZIDINE DIHYDROCHLORIDE
     Indication: CARDIAC DISORDER
     Dosage: 70 MG, BID (SINCE 3 YEARS AGO)
     Route: 048

REACTIONS (8)
  - Syncope [Unknown]
  - Malaise [Recovering/Resolving]
  - Memory impairment [Unknown]
  - Brain hypoxia [Unknown]
  - Fall [Unknown]
  - Neuralgia [Unknown]
  - Neuropathy peripheral [Unknown]
  - Pain in extremity [Recovering/Resolving]
